FAERS Safety Report 18060413 (Version 1)
Quarter: 2020Q3

REPORT INFORMATION
  Report Type: Spontaneous
  Country: US (occurrence: US)
  Receive Date: 20200723
  Receipt Date: 20200723
  Transmission Date: 20201103
  Serious: Yes (Disabling)
  Sender: FDA-Public Use
  Company Number: None

PATIENT
  Age: 27 Year
  Sex: Female
  Weight: 81 kg

DRUGS (7)
  1. BIRTH CONTROL [Concomitant]
     Active Substance: UNSPECIFIED INGREDIENT
  2. VALTREX [Concomitant]
     Active Substance: VALACYCLOVIR HYDROCHLORIDE
  3. WELLBURTIN XL [Concomitant]
  4. ASSURED INSTANT HAND SANITIZER VITAMIN E AND ALOE [Suspect]
     Active Substance: ALCOHOL
     Indication: PERSONAL HYGIENE
     Dosage: ?          QUANTITY:1 BOTTLE;?
     Route: 061
  5. CETIRIZINE [Concomitant]
     Active Substance: CETIRIZINE HYDROCHLORIDE
  6. ZOLOFT [Concomitant]
     Active Substance: SERTRALINE HYDROCHLORIDE
  7. TRAZODONE [Concomitant]
     Active Substance: TRAZODONE HYDROCHLORIDE

REACTIONS (2)
  - Therapy non-responder [None]
  - Headache [None]

NARRATIVE: CASE EVENT DATE: 20200501
